FAERS Safety Report 9115844 (Version 1)
Quarter: 2013Q1

REPORT INFORMATION
  Report Type: Spontaneous
  Country: US (occurrence: US)
  Receive Date: 20130225
  Receipt Date: 20130225
  Transmission Date: 20140127
  Serious: Yes (Hospitalization)
  Sender: FDA-Public Use
  Company Number: US-GLAXOSMITHKLINE-A0998199A

PATIENT
  Sex: Male

DRUGS (6)
  1. ADVAIR [Suspect]
     Indication: ASTHMA
     Dosage: 1PUFF PER DAY
     Route: 055
  2. ALBUTEROL [Concomitant]
  3. TYLENOL [Concomitant]
  4. PREDNISONE [Concomitant]
  5. ALLEGRA [Concomitant]
  6. BLOOD PRESSURE MEDICATION [Concomitant]

REACTIONS (6)
  - Inhalation therapy [Not Recovered/Not Resolved]
  - Productive cough [Unknown]
  - Increased upper airway secretion [Unknown]
  - Therapeutic response decreased [Unknown]
  - Dyspnoea [Unknown]
  - Drug ineffective [Unknown]
